FAERS Safety Report 4613473-6 (Version None)
Quarter: 2005Q1

REPORT INFORMATION
  Report Type: 
  Country: None (occurrence: None)
  Receive Date: 20050321
  Receipt Date: 20050124
  Transmission Date: 20050727
  Serious: Yes (Hospitalization, Other)
  Sender: FDA-Public Use
  Company Number: JP-BRISTOL-MYERS SQUIBB COMPANY-12834834

PATIENT
  Age: 73 Year
  Sex: Male

DRUGS (7)
  1. TAXOL [Suspect]
     Indication: LUNG NEOPLASM MALIGNANT
     Route: 042
     Dates: start: 20050117, end: 20050117
  2. PARAPLATIN [Suspect]
     Indication: LUNG NEOPLASM MALIGNANT
     Route: 042
     Dates: start: 20050117, end: 20050117
  3. RADIOTHERAPY [Concomitant]
     Dosage: DOSE:  14GY
     Dates: start: 20050104, end: 20050114
  4. DEXAMETHASONE SODIUM PHOSPHATE [Concomitant]
     Route: 042
  5. FAMOTIDINE [Concomitant]
     Route: 042
  6. GRANISETRON HCL [Concomitant]
     Route: 042
  7. DIPHENHYDRAMINE HCL [Concomitant]
     Route: 048
     Dates: start: 20050117, end: 20050117

REACTIONS (2)
  - ATRIAL FIBRILLATION [None]
  - ATRIOVENTRICULAR BLOCK COMPLETE [None]
